FAERS Safety Report 11814310 (Version 3)
Quarter: 2016Q2

REPORT INFORMATION
  Report Type: Report from Study
  Country: CA (occurrence: CA)
  Receive Date: 20151209
  Receipt Date: 20160407
  Transmission Date: 20160815
  Serious: Yes (Hospitalization, Other)
  Sender: FDA-Public Use
  Company Number: CA-JNJFOC-20151205403

PATIENT
  Age: 53 Year
  Sex: Male
  Weight: 71.9 kg

DRUGS (3)
  1. ACTONEL [Concomitant]
     Active Substance: RISEDRONATE SODIUM
     Route: 065
  2. REMICADE [Suspect]
     Active Substance: INFLIXIMAB
     Indication: CROHN^S DISEASE
     Dosage: FOR 52
     Route: 042
     Dates: start: 20131218
  3. IMURAN [Concomitant]
     Active Substance: AZATHIOPRINE
     Route: 065

REACTIONS (5)
  - Intestinal resection [Unknown]
  - Procedural pain [Recovered/Resolved]
  - Colon cancer [Unknown]
  - Allergy to metals [Unknown]
  - Inflammation [Unknown]

NARRATIVE: CASE EVENT DATE: 20151120
